FAERS Safety Report 4386462-7 (Version None)
Quarter: 2004Q2

REPORT INFORMATION
  Report Type: 
  Country: None (occurrence: None)
  Receive Date: 20040629
  Receipt Date: 20040618
  Transmission Date: 20050107
  Serious: Yes (Hospitalization, Disabling)
  Sender: FDA-Public Use
  Company Number: CH-ROCHE-371304

PATIENT
  Sex: Female
  Weight: 50 kg

DRUGS (1)
  1. LARIAM [Suspect]
     Indication: MALARIA PROPHYLAXIS
     Route: 048
     Dates: start: 20040326, end: 20040423

REACTIONS (4)
  - ASTHENIA [None]
  - EOSINOPHILIA [None]
  - FATIGUE [None]
  - URINARY INCONTINENCE [None]
